FAERS Safety Report 7245874-4 (Version None)
Quarter: 2011Q1

REPORT INFORMATION
  Report Type: 
  Country: None (occurrence: None)
  Receive Date: 20110126
  Receipt Date: 20110113
  Transmission Date: 20110831
  Serious: Yes (Other)
  Sender: FDA-Public Use
  Company Number: FR-ELI_LILLY_AND_COMPANY-FR201101003386

PATIENT
  Age: 58 Year
  Sex: Female

DRUGS (2)
  1. CYMBALTA [Suspect]
     Indication: NEURALGIA
     Dosage: 60 MG, DAILY (1/D)
     Route: 048
     Dates: start: 20100101
  2. LEXOMIL [Concomitant]

REACTIONS (5)
  - NAUSEA [None]
  - PANCREATITIS CHRONIC [None]
  - LIPASE ABNORMAL [None]
  - FAECES DISCOLOURED [None]
  - OFF LABEL USE [None]
